FAERS Safety Report 16114112 (Version 2)
Quarter: 2021Q2

REPORT INFORMATION
  Report Type: Spontaneous
  Country: US (occurrence: US)
  Receive Date: 20190325
  Receipt Date: 20210413
  Transmission Date: 20210716
  Serious: No
  Sender: FDA-Public Use
  Company Number: US-ALLERGAN-1815560US

PATIENT
  Sex: Female

DRUGS (1)
  1. LUMIGAN [Suspect]
     Active Substance: BIMATOPROST
     Indication: GLAUCOMA
     Dosage: 2 GTT, QD
     Route: 047

REACTIONS (6)
  - Visual impairment [Unknown]
  - Eye pain [Unknown]
  - Intraocular pressure increased [Unknown]
  - Growth of eyelashes [Unknown]
  - Madarosis [Unknown]
  - Erythema of eyelid [Not Recovered/Not Resolved]
